FAERS Safety Report 20899322 (Version 1)
Quarter: 2022Q2

REPORT INFORMATION
  Report Type: Spontaneous
  Country: HK (occurrence: HK)
  Receive Date: 20220601
  Receipt Date: 20220601
  Transmission Date: 20220721
  Serious: Yes (Other)
  Sender: FDA-Public Use
  Company Number: HK-NOVARTISPH-NVSC2022HK121870

PATIENT

DRUGS (1)
  1. BEOVU [Suspect]
     Active Substance: BROLUCIZUMAB-DBLL
     Indication: Detachment of retinal pigment epithelium
     Dosage: UNK (COMPLETED 3 VIALS)
     Route: 065

REACTIONS (3)
  - Central serous chorioretinopathy [Unknown]
  - COVID-19 [Unknown]
  - Product use in unapproved indication [Unknown]
